FAERS Safety Report 4288856-7 (Version None)
Quarter: 2004Q1

REPORT INFORMATION
  Report Type: 
  Country: None (occurrence: None)
  Receive Date: 20040205
  Receipt Date: 20040120
  Transmission Date: 20041129
  Serious: Yes (Death)
  Sender: FDA-Public Use
  Company Number: CA_040106573

PATIENT
  Sex: Male

DRUGS (2)
  1. ZYPREXA [Suspect]
  2. CLOPIXOL ACUPHASE (ZUCLOPENTHIXOL ACETATE) [Concomitant]

REACTIONS (1)
  - DEATH [None]
